FAERS Safety Report 8961469 (Version 1)
Quarter: 2012Q4

REPORT INFORMATION
  Report Type: 
  Country: BR (occurrence: BR)
  Receive Date: 20121213
  Receipt Date: 20121213
  Transmission Date: 20130627
  Serious: Yes (Other)
  Sender: FDA-Public Use
  Company Number: BR-BAYER-2012-129580

PATIENT
  Sex: Female

DRUGS (3)
  1. BETAFERON [Suspect]
     Indication: MULTIPLE SCLEROSIS
     Dosage: 1 ml, QOD
     Route: 058
     Dates: start: 2010
  2. GINKGO BILOBA [Concomitant]
     Indication: MEMORY DISTURBANCE
     Dosage: 1 DF, QD
     Route: 048
     Dates: start: 201206
  3. FRONTAL [Concomitant]
     Indication: ANGUISH
     Dosage: UNK
     Route: 048
     Dates: start: 2010

REACTIONS (8)
  - Depression [Recovered/Resolved]
  - Suicidal ideation [Recovered/Resolved]
  - Impaired work ability [Recovered/Resolved]
  - Dysphonia [Not Recovered/Not Resolved]
  - Self esteem decreased [Recovered/Resolved]
  - Anxiety [Recovered/Resolved]
  - Feeling of despair [Recovered/Resolved]
  - Malaise [Recovered/Resolved]
